FAERS Safety Report 7081656-4 (Version None)
Quarter: 2010Q4

REPORT INFORMATION
  Report Type: 
  Country: None (occurrence: None)
  Receive Date: 20101025
  Receipt Date: 20101011
  Transmission Date: 20110411
  Serious: Yes (Life-Threatening, Other)
  Sender: FDA-Public Use
  Company Number: 2010P1001886

PATIENT
  Sex: Female

DRUGS (3)
  1. FENTANYL-25 [Suspect]
     Dosage: TDER
     Route: 062
  2. CON MEDS [Concomitant]
  3. PREV MEDS [Concomitant]

REACTIONS (8)
  - CARDIOVASCULAR DISORDER [None]
  - CEREBROVASCULAR ACCIDENT [None]
  - DYSPNOEA [None]
  - GENERAL PHYSICAL HEALTH DETERIORATION [None]
  - OEDEMA PERIPHERAL [None]
  - OVERDOSE [None]
  - RESPIRATORY DISORDER [None]
  - WRONG TECHNIQUE IN DRUG USAGE PROCESS [None]
